FAERS Safety Report 7331996-6 (Version None)
Quarter: 2011Q1

REPORT INFORMATION
  Report Type: 
  Country: None (occurrence: None)
  Receive Date: 20110304
  Receipt Date: 20110112
  Transmission Date: 20110831
  Serious: Yes (Other)
  Sender: FDA-Public Use
  Company Number: US-TYCO HEALTHCARE/MALLINCKRODT-T201100072

PATIENT
  Age: 75 Year
  Sex: Male

DRUGS (1)
  1. EXALGO [Suspect]
     Dosage: UNK

REACTIONS (2)
  - AGGRESSION [None]
  - NIGHTMARE [None]
